FAERS Safety Report 7105115-5 (Version None)
Quarter: 2010Q4

REPORT INFORMATION
  Report Type: 
  Country: None (occurrence: None)
  Receive Date: 20101116
  Receipt Date: 20101110
  Transmission Date: 20110411
  Serious: Yes (Death, Other)
  Sender: FDA-Public Use
  Company Number: JP-PFIZER INC-2009224518

PATIENT
  Age: 38 Year
  Sex: Female
  Weight: 64.6 kg

DRUGS (8)
  1. SILDENAFIL CITRATE [Suspect]
     Indication: PULMONARY HYPERTENSION
     Dosage: FREQUENCY: 3X/DAY,
     Route: 048
     Dates: start: 20080416, end: 20080417
  2. NITROGLYCERIN [Suspect]
     Indication: PULMONARY HYPERTENSION
     Dosage: 0.1 UG/KG/MIN 1 HR AFTER SECOND DOSE OF SILDENAFIL
     Route: 042
     Dates: start: 20080415, end: 20080417
  3. WARFARIN [Concomitant]
     Route: 048
  4. TRACLEER [Concomitant]
     Dosage: UNK
     Route: 048
     Dates: start: 20050701, end: 20080401
  5. DOBUTAMINE HYDROCHLORIDE [Concomitant]
  6. OLPRINONE HYDROCHLORIDE [Concomitant]
  7. NORADRENALINE [Concomitant]
  8. FUROSEMIDE [Concomitant]
     Dosage: 20 MG/HR

REACTIONS (2)
  - CIRCULATORY COLLAPSE [None]
  - DRUG INTERACTION [None]
